FAERS Safety Report 12443015 (Version 2)
Quarter: 2016Q3

REPORT INFORMATION
  Report Type: Spontaneous
  Country: DE (occurrence: DE)
  Receive Date: 20160607
  Receipt Date: 20160811
  Transmission Date: 20161109
  Serious: Yes (Other)
  Sender: FDA-Public Use
  Company Number: DE-GLAXOSMITHKLINE-DE2016GSK078964

PATIENT
  Age: 33 Year
  Sex: Female
  Weight: 60 kg

DRUGS (1)
  1. VOLTAREN SCHMERZGEL FORTE [Suspect]
     Active Substance: DICLOFENAC DIETHYLAMINE
     Indication: TENDONITIS
     Dosage: UNK
     Route: 065
     Dates: start: 20160329

REACTIONS (5)
  - Off label use [Unknown]
  - Erythema [Recovered/Resolved]
  - Urticaria [Recovered/Resolved]
  - Vaginal inflammation [Recovered/Resolved]
  - Pyrexia [Recovered/Resolved]

NARRATIVE: CASE EVENT DATE: 20160329
